FAERS Safety Report 16822146 (Version 2)
Quarter: 2019Q4

REPORT INFORMATION
  Report Type: Spontaneous
  Country: US (occurrence: US)
  Receive Date: 20190918
  Receipt Date: 20191024
  Transmission Date: 20200122
  Serious: No
  Sender: FDA-Public Use
  Company Number: US-PFIZER INC-2019397552

PATIENT
  Age: 7 Year
  Sex: Male
  Weight: 17 kg

DRUGS (1)
  1. GENOTROPIN [Suspect]
     Active Substance: SOMATROPIN
     Dosage: UNK
     Dates: start: 201402

REACTIONS (4)
  - Expired device used [Unknown]
  - Device issue [Unknown]
  - Wrong technique in device usage process [Unknown]
  - Injection site haemorrhage [Unknown]
